FAERS Safety Report 4799216-4 (Version None)
Quarter: 2005Q4

REPORT INFORMATION
  Report Type: 
  Country: None (occurrence: None)
  Receive Date: 20051014
  Receipt Date: 20051005
  Transmission Date: 20060501
  Serious: Yes (Hospitalization)
  Sender: FDA-Public Use
  Company Number: US-MERCK-0510USA03414

PATIENT
  Age: 38 Year
  Sex: Female
  Weight: 114 kg

DRUGS (8)
  1. VIOXX [Suspect]
     Indication: JOINT STIFFNESS
     Route: 048
     Dates: start: 19990101, end: 20030101
  2. VIOXX [Suspect]
     Indication: JOINT SWELLING
     Route: 048
     Dates: start: 19990101, end: 20030101
  3. COREG [Concomitant]
     Route: 065
  4. XANAX [Concomitant]
     Route: 065
  5. DEPAKOTE [Concomitant]
     Route: 065
  6. LASIX [Concomitant]
     Route: 065
  7. LOTENSIN [Concomitant]
     Route: 065
  8. EXCEDRIN (MIGRAINE) [Concomitant]
     Route: 065

REACTIONS (4)
  - BLOOD PRESSURE INADEQUATELY CONTROLLED [None]
  - CARDIAC FAILURE CONGESTIVE [None]
  - CHEST PAIN [None]
  - KIDNEY INFECTION [None]
